FAERS Safety Report 6130311-3 (Version None)
Quarter: 2009Q1

REPORT INFORMATION
  Report Type: 
  Country: None (occurrence: None)
  Receive Date: 20090324
  Receipt Date: 20090317
  Transmission Date: 20090719
  Serious: Yes (Hospitalization)
  Sender: FDA-Public Use
  Company Number: CA-WYE-H06878908

PATIENT
  Age: 20 Year
  Sex: Female
  Weight: 36 kg

DRUGS (7)
  1. RECOMBINANT HUMAN INTERLEUKIN-11 (RHIL-11) [Suspect]
     Indication: THROMBOCYTOPENIA
     Route: 058
     Dates: start: 20071015, end: 20071021
  2. DAPSONE [Concomitant]
     Indication: PROPHYLAXIS
     Route: 048
  3. AMITRIPTYLINE [Concomitant]
     Indication: PAIN
     Dosage: 20MG AT BEDTIME
     Route: 048
  4. AMITRIPTYLINE [Concomitant]
     Indication: SEDATION
  5. MORPHINE [Interacting]
     Route: 048
     Dates: start: 20070101, end: 20071024
  6. PHENOBARBITAL TAB [Concomitant]
     Indication: PAIN
     Dosage: 30MG AT BEDTIME
     Route: 048
  7. PHENOBARBITAL TAB [Concomitant]
     Indication: SEDATION

REACTIONS (9)
  - ANALGESIA [None]
  - BLOOD CREATININE INCREASED [None]
  - BLOOD UREA INCREASED [None]
  - DEPRESSED LEVEL OF CONSCIOUSNESS [None]
  - DRUG INTERACTION [None]
  - OEDEMA PERIPHERAL [None]
  - PULMONARY OEDEMA [None]
  - RESPIRATORY DEPRESSION [None]
  - SOMNOLENCE [None]
